FAERS Safety Report 7592129 (Version 3)
Quarter: 2013Q1

REPORT INFORMATION
  Report Type: Spontaneous
  Country: FR (occurrence: FR)
  Receive Date: 20100917
  Receipt Date: 20130321
  Transmission Date: 20140127
  Serious: Yes (Death, Hospitalization, Other)
  Sender: FDA-Public Use
  Company Number: FR-ELI_LILLY_AND_COMPANY-FR201008008698

PATIENT
  Age: 50 Year
  Sex: Female

DRUGS (5)
  1. ZYPADHERA [Suspect]
     Dosage: 405 MG, EVERY 15 DAYS
     Route: 030
     Dates: start: 201007
  2. ZYPADHERA [Suspect]
     Dosage: 300 MG, EVERY 15 DAYS
     Route: 030
     Dates: start: 201006, end: 201006
  3. ZYPREXA [Suspect]
     Dosage: 40 MG, DAILY (1/D)
     Route: 048
     Dates: end: 201006
  4. TEMESTA [Concomitant]
     Dosage: UNK, UNKNOWN
     Route: 048
  5. THERALENE [Concomitant]
     Dosage: UNK, UNKNOWN
     Route: 048

REACTIONS (12)
  - Pulmonary embolism [Fatal]
  - Blood pressure systolic increased [Recovered/Resolved]
  - Sedation [Recovered/Resolved]
  - Drug ineffective [Unknown]
  - Mental disorder [Unknown]
  - Prescribed overdose [Unknown]
  - Confusional state [Not Recovered/Not Resolved]
  - Major depression [Not Recovered/Not Resolved]
  - Sedation [Unknown]
  - Confusional state [Unknown]
  - Prescribed overdose [Not Recovered/Not Resolved]
  - Sinus tachycardia [Unknown]
